FAERS Safety Report 21006639 (Version 1)
Quarter: 2022Q2

REPORT INFORMATION
  Report Type: Spontaneous
  Country: US (occurrence: US)
  Receive Date: 20220625
  Receipt Date: 20220625
  Transmission Date: 20220721
  Serious: Yes (Other)
  Sender: FDA-Public Use
  Company Number: US-CELLTRION INC.-2022US009659

PATIENT

DRUGS (2)
  1. TRUXIMA [Suspect]
     Active Substance: RITUXIMAB-ABBS
     Indication: Myasthenia gravis
     Dosage: 750 FOR 1 SESSION AND REPEAT IN 2 WEEKS
     Dates: start: 20220616
  2. TRUXIMA [Suspect]
     Active Substance: RITUXIMAB-ABBS
     Indication: Polyneuropathy

REACTIONS (3)
  - Myasthenia gravis [Unknown]
  - Polyneuropathy [Unknown]
  - Off label use [Unknown]
